FAERS Safety Report 12912683 (Version 1)
Quarter: 2016Q4

REPORT INFORMATION
  Report Type: Spontaneous
  Country: US (occurrence: US)
  Receive Date: 20161104
  Receipt Date: 20161104
  Transmission Date: 20170207
  Serious: Yes (Other)
  Sender: FDA-Public Use
  Company Number: US-ELI_LILLY_AND_COMPANY-US201611001494

PATIENT
  Sex: Female

DRUGS (6)
  1. CYMBALTA [Suspect]
     Active Substance: DULOXETINE HYDROCHLORIDE
     Dosage: 30 MG, UNKNOWN
     Route: 065
     Dates: start: 2015
  2. CYMBALTA [Suspect]
     Active Substance: DULOXETINE HYDROCHLORIDE
     Dosage: 20 MG, QD
     Route: 065
     Dates: end: 201604
  3. CYMBALTA [Suspect]
     Active Substance: DULOXETINE HYDROCHLORIDE
     Indication: PRODUCT USED FOR UNKNOWN INDICATION
     Dosage: UNK, UNKNOWN
     Route: 065
  4. CYMBALTA [Suspect]
     Active Substance: DULOXETINE HYDROCHLORIDE
     Dosage: 60 MG, QD
     Route: 065
     Dates: start: 2016
  5. CYMBALTA [Suspect]
     Active Substance: DULOXETINE HYDROCHLORIDE
     Dosage: 30 MG, UNKNOWN
     Route: 065
     Dates: start: 201410
  6. CYMBALTA [Suspect]
     Active Substance: DULOXETINE HYDROCHLORIDE
     Dosage: 30 MG, UNKNOWN
     Route: 065
     Dates: start: 2016

REACTIONS (17)
  - Paraesthesia [Unknown]
  - Pain in jaw [Unknown]
  - Withdrawal syndrome [Unknown]
  - Arthralgia [Unknown]
  - Chills [Unknown]
  - Drug ineffective [Unknown]
  - Oral pain [Unknown]
  - Back pain [Unknown]
  - Intentional product misuse [Unknown]
  - Skin fissures [Unknown]
  - Muscle spasms [Unknown]
  - Myalgia [Unknown]
  - Emotional disorder [Unknown]
  - Headache [Unknown]
  - Hyperhidrosis [Unknown]
  - Suicidal ideation [Unknown]
  - Dizziness [Unknown]
